FAERS Safety Report 6896541-8 (Version None)
Quarter: 2010Q3

REPORT INFORMATION
  Report Type: 
  Country: None (occurrence: None)
  Receive Date: 20100802
  Receipt Date: 20100728
  Transmission Date: 20110219
  Serious: Yes (Death, Hospitalization, Other)
  Sender: FDA-Public Use
  Company Number: PHHY2010BR49398

PATIENT
  Age: 48 Year

DRUGS (3)
  1. CYCLOSPORINE [Suspect]
     Indication: HEART TRANSPLANT
  2. MYCOPHENOLATE MOFETIL [Suspect]
     Indication: HEART TRANSPLANT
  3. PREDNISONE [Suspect]
     Route: 048

REACTIONS (7)
  - AORTIC SURGERY [None]
  - AORTIC VALVE INCOMPETENCE [None]
  - CEREBROVASCULAR ACCIDENT [None]
  - EMBOLISM ARTERIAL [None]
  - HEART TRANSPLANT REJECTION [None]
  - INFECTION [None]
  - LEFT VENTRICULAR DYSFUNCTION [None]
